FAERS Safety Report 24597435 (Version 8)
Quarter: 2025Q1

REPORT INFORMATION
  Report Type: Spontaneous
  Country: US (occurrence: US)
  Receive Date: 20241110
  Receipt Date: 20250312
  Transmission Date: 20250408
  Serious: Yes (Hospitalization, Other)
  Sender: SANOFI AVENTIS
  Company Number: US-SA-2024SA309393

PATIENT
  Age: 62 Year
  Sex: Female
  Weight: 104.3 kg

DRUGS (30)
  1. DUPIXENT [Suspect]
     Active Substance: DUPILUMAB
     Indication: Alpha-1 antitrypsin deficiency
     Dosage: 300 MG, QOW
     Route: 058
  2. DUPIXENT [Suspect]
     Active Substance: DUPILUMAB
     Indication: Illness
  3. ACETAMINOPHEN\ASCORBIC ACID [Concomitant]
     Active Substance: ACETAMINOPHEN\ASCORBIC ACID
  4. SODIUM CHLORIDE [Concomitant]
     Active Substance: SODIUM CHLORIDE
  5. EPINEPHRINE [EPINEPHRINE HYDROCHLORIDE] [Concomitant]
  6. DIPHENHYDRAMINE HYDROCHLORIDE [Concomitant]
     Active Substance: DIPHENHYDRAMINE HYDROCHLORIDE
  7. GLASSIA [Concomitant]
     Active Substance: .ALPHA.1-PROTEINASE INHIBITOR HUMAN
  8. VITAMIN B12 [Concomitant]
     Active Substance: CYANOCOBALAMIN
  9. PROPRANOLOL HYDROCHLORIDE [Concomitant]
     Active Substance: PROPRANOLOL HYDROCHLORIDE
  10. TRESIBA [Concomitant]
     Active Substance: INSULIN DEGLUDEC
  11. AMLODIPINE BESYLATE [Concomitant]
     Active Substance: AMLODIPINE BESYLATE
  12. AIRSUPRA [BUDESONIDE;SALBUTAMOL] [Concomitant]
  13. BUSPIRONE HCL [Concomitant]
     Active Substance: BUSPIRONE HYDROCHLORIDE
  14. DULOXETINE HYDROCHLORIDE [Concomitant]
     Active Substance: DULOXETINE HYDROCHLORIDE
  15. CLONAZEPAM [Concomitant]
     Active Substance: CLONAZEPAM
  16. NOVOLOG [Concomitant]
     Active Substance: INSULIN ASPART
  17. HYDROCODONE BITARTRATE [Concomitant]
     Active Substance: HYDROCODONE BITARTRATE
  18. ICOSAPENT [Concomitant]
     Active Substance: ICOSAPENT
  19. TRELEGY ELLIPTA [Concomitant]
     Active Substance: FLUTICASONE FUROATE\UMECLIDINIUM BROMIDE\VILANTEROL TRIFENATATE
  20. TRAZODONE HCL [Concomitant]
     Active Substance: TRAZODONE HYDROCHLORIDE
  21. TIZANIDINE HYDROCHLORIDE [Concomitant]
     Active Substance: TIZANIDINE HYDROCHLORIDE
  22. ETODOLAC [Concomitant]
     Active Substance: ETODOLAC
  23. FENOFIBRATE [Concomitant]
     Active Substance: FENOFIBRATE
  24. MONTELUKAST SODIUM [Concomitant]
     Active Substance: MONTELUKAST SODIUM
  25. FARXIGA [Concomitant]
     Active Substance: DAPAGLIFLOZIN PROPANEDIOL
  26. LOSARTAN POTASSIUM [Concomitant]
     Active Substance: LOSARTAN POTASSIUM
  27. LYRICA [Concomitant]
     Active Substance: PREGABALIN
  28. FUROSEMIDE SODIUM [Concomitant]
     Active Substance: FUROSEMIDE SODIUM
  29. PANTOPRAZOLE SODIUM [Concomitant]
     Active Substance: PANTOPRAZOLE SODIUM
  30. OZEMPIC [Concomitant]
     Active Substance: SEMAGLUTIDE

REACTIONS (10)
  - Pneumonia [Unknown]
  - Hypoxia [Recovering/Resolving]
  - White blood cell count increased [Unknown]
  - Hypercapnia [Unknown]
  - Throat irritation [Unknown]
  - Oxygen saturation decreased [Unknown]
  - Fall [Unknown]
  - Contusion [Unknown]
  - Peripheral swelling [Unknown]
  - Product use in unapproved indication [Unknown]

NARRATIVE: CASE EVENT DATE: 20240101
